FAERS Safety Report 8403858-4 (Version None)
Quarter: 2012Q2

REPORT INFORMATION
  Report Type: 
  Country: None (occurrence: None)
  Receive Date: 20120601
  Receipt Date: 20120521
  Transmission Date: 20120825
  Serious: Yes (Other)
  Sender: FDA-Public Use
  Company Number: US-MYLANLABS-2012S1010530

PATIENT
  Age: 81 Year
  Sex: Male

DRUGS (7)
  1. WARFARIN SODIUM [Concomitant]
     Route: 065
  2. AZTREONAM [Concomitant]
     Indication: SEPSIS
     Route: 065
  3. INSULIN [Concomitant]
     Route: 065
  4. VANCOMYCIN [Concomitant]
     Indication: SEPSIS
     Route: 065
  5. LISINOPRIL [Suspect]
     Route: 065
  6. CELECOXIB [Concomitant]
     Route: 065
  7. ALLOPURINOL [Concomitant]
     Route: 065

REACTIONS (1)
  - HYPOTENSIVE TRANSFUSION REACTION [None]
